FAERS Safety Report 4772815-1 (Version None)
Quarter: 2005Q3

REPORT INFORMATION
  Report Type: 
  Country: None (occurrence: None)
  Receive Date: 20050919
  Receipt Date: 20050113
  Transmission Date: 20060218
  Serious: Yes (Hospitalization, Other)
  Sender: FDA-Public Use
  Company Number: GB-MERCK-0501GBR00156

PATIENT
  Age: 70 Year
  Sex: Male

DRUGS (7)
  1. SINGULAIR [Suspect]
     Indication: CHRONIC OBSTRUCTIVE PULMONARY DISEASE
     Route: 048
     Dates: start: 20031001, end: 20040728
  2. SINGULAIR [Suspect]
     Indication: ASTHMA
     Route: 048
     Dates: start: 20031001, end: 20040728
  3. RAMIPRIL [Concomitant]
     Indication: HYPERTENSION
     Route: 065
  4. ISOSORBIDE MONONITRATE [Concomitant]
     Indication: CORONARY ARTERY DISEASE
     Route: 065
  5. SPIRIVA [Concomitant]
     Indication: CHRONIC OBSTRUCTIVE PULMONARY DISEASE
     Route: 065
  6. SPIRIVA [Concomitant]
     Indication: ASTHMA
     Route: 065
  7. HYDROXYUREA [Suspect]
     Indication: LEUKOCYTOSIS
     Route: 065
     Dates: start: 20040901, end: 20041201

REACTIONS (6)
  - BONE MARROW DISORDER [None]
  - LEUKOCYTOSIS [None]
  - MALAISE [None]
  - MYELOCYTE COUNT DECREASED [None]
  - NEUTROPHIL COUNT INCREASED [None]
  - WHITE BLOOD CELL COUNT DECREASED [None]
